FAERS Safety Report 5392907-6 (Version None)
Quarter: 2007Q3

REPORT INFORMATION
  Report Type: 
  Country: None (occurrence: None)
  Receive Date: 20070718
  Receipt Date: 20070711
  Transmission Date: 20080115
  Serious: Yes (Other)
  Sender: FDA-Public Use
  Company Number: CHNY2007BR02514

PATIENT
  Sex: Female

DRUGS (2)
  1. CIBALENAA (NCH)(CAFFEINE CITRATE, ACETYLSALICYLIC ACID, ACETAMINOPHEN [Suspect]
     Dosage: 4 TABLETS, ORAL
     Route: 048
  2. CONTRACEPTIVES NOS (NO INGREDIENTS/SUBSTANCES) [Concomitant]

REACTIONS (4)
  - ABORTION INDUCED [None]
  - DRUG EXPOSURE DURING PREGNANCY [None]
  - INTENTIONAL DRUG MISUSE [None]
  - UNWANTED PREGNANCY [None]
